FAERS Safety Report 18962722 (Version 1)
Quarter: 2021Q1

REPORT INFORMATION
  Report Type: Spontaneous
  Country: US (occurrence: US)
  Receive Date: 20210303
  Receipt Date: 20210303
  Transmission Date: 20210420
  Serious: No
  Sender: FDA-Public Use
  Company Number: None

PATIENT
  Age: 52 Year
  Sex: Female
  Weight: 92.25 kg

DRUGS (2)
  1. AMBRENBEN [Concomitant]
  2. ELIQUIS [Suspect]
     Active Substance: APIXABAN
     Indication: THROMBOSIS
     Dosage: ?          QUANTITY:74 TABLET(S);?
     Route: 048
     Dates: start: 20210228, end: 20210303

REACTIONS (1)
  - Contusion [None]

NARRATIVE: CASE EVENT DATE: 20210303
